FAERS Safety Report 10166524 (Version 1)
Quarter: 2014Q2

REPORT INFORMATION
  Report Type: Spontaneous
  Country: US (occurrence: None)
  Receive Date: 20140509
  Receipt Date: 20140509
  Transmission Date: 20141212
  Serious: Yes (Other)
  Sender: FDA-Public Use
  Company Number: None

PATIENT
  Age: 86 Year
  Sex: Female

DRUGS (4)
  1. ARIMIDEX [Suspect]
     Indication: BREAST CANCER
     Route: 048
     Dates: start: 20131106, end: 20140501
  2. LOSARTAN [Concomitant]
  3. HCTZ [Concomitant]
  4. METOPROLOL [Concomitant]

REACTIONS (2)
  - Dizziness [None]
  - Headache [None]
